FAERS Safety Report 23570993 (Version 1)
Quarter: 2024Q1

REPORT INFORMATION
  Report Type: Spontaneous
  Country: US (occurrence: US)
  Receive Date: 20240227
  Receipt Date: 20240227
  Transmission Date: 20240409
  Serious: No
  Sender: FDA-Public Use
  Company Number: US-PFIZER INC-202400049647

PATIENT
  Age: 71 Year
  Sex: Female

DRUGS (1)
  1. IBRANCE [Suspect]
     Active Substance: PALBOCICLIB
     Indication: Breast cancer female
     Dosage: 100 MG, DAILY (DAILY ON DAYS 1-21, THEN TAKE 7 DAYS OFF, DO NOT CRUSH, CHEW OR OPEN)
     Route: 048
     Dates: start: 20220112

REACTIONS (1)
  - Respiratory tract infection [Unknown]
